APPROVED DRUG PRODUCT: DOXYCYCLINE HYCLATE
Active Ingredient: DOXYCYCLINE HYCLATE
Strength: EQ 50MG BASE
Dosage Form/Route: TABLET, DELAYED RELEASE;ORAL
Application: A207494 | Product #003 | TE Code: AB
Applicant: PRINSTON PHARMACEUTICAL INC
Approved: Feb 19, 2019 | RLD: No | RS: No | Type: RX